FAERS Safety Report 8243568-X (Version None)
Quarter: 2012Q1

REPORT INFORMATION
  Report Type: 
  Country: None (occurrence: None)
  Receive Date: 20120329
  Receipt Date: 20120328
  Transmission Date: 20120608
  Serious: Yes (Death, Life-Threatening, Hospitalization)
  Sender: FDA-Public Use
  Company Number: PHEH2011US009639

PATIENT
  Sex: Male
  Weight: 85.261 kg

DRUGS (15)
  1. EXJADE [Suspect]
     Indication: IRON METABOLISM DISORDER
  2. PULMICORT [Concomitant]
  3. SIMVASTATIN [Concomitant]
  4. MEGACE [Concomitant]
  5. ASPIRIN [Concomitant]
  6. FLONAX [Concomitant]
  7. COREG [Concomitant]
  8. MUCINEX [Concomitant]
  9. MIRALAX [Concomitant]
  10. PROTONIX [Concomitant]
  11. EXJADE [Suspect]
     Indication: IRON OVERLOAD
     Dosage: 500 MG, BID
     Route: 048
     Dates: start: 20110810, end: 20111110
  12. ALBUTEROL [Concomitant]
  13. NEURONTIN [Concomitant]
  14. PLAVIX [Concomitant]
  15. PROCARDIA [Concomitant]

REACTIONS (2)
  - DEATH [None]
  - ACUTE MYOCARDIAL INFARCTION [None]
